FAERS Safety Report 5806676-6 (Version None)
Quarter: 2008Q3

REPORT INFORMATION
  Report Type: 
  Country: None (occurrence: None)
  Receive Date: 20080710
  Receipt Date: 20080702
  Transmission Date: 20090109
  Serious: Yes (Disabling)
  Sender: FDA-Public Use
  Company Number: GB-MERCK-0807GBR00014

PATIENT
  Age: 60 Year
  Sex: Male
  Weight: 77 kg

DRUGS (2)
  1. ZOCOR [Suspect]
     Route: 048
     Dates: start: 20070319, end: 20080421
  2. ALFUZOSIN HYDROCHLORIDE [Concomitant]
     Indication: BLADDER OBSTRUCTION
     Route: 048

REACTIONS (2)
  - PERINEAL PAIN [None]
  - PROSTATISM [None]
